FAERS Safety Report 24448478 (Version 1)
Quarter: 2024Q4

REPORT INFORMATION
  Report Type: Spontaneous
  Country: AT (occurrence: AT)
  Receive Date: 20241017
  Receipt Date: 20241017
  Transmission Date: 20250115
  Serious: Yes (Other)
  Sender: BEIGENE
  Company Number: AT-BEIGENE-BGN-2024-016332

PATIENT

DRUGS (2)
  1. BRUKINSA [Suspect]
     Active Substance: ZANUBRUTINIB
     Indication: Waldenstrom^s macroglobulinaemia
     Dosage: 80 MILLIGRAM, BID
  2. ELIQUIS [Concomitant]
     Active Substance: APIXABAN
     Dosage: AUF 2,5MG 2XDAILY

REACTIONS (5)
  - Cardiac fibrillation [Unknown]
  - Pyrexia [Unknown]
  - Rash [Unknown]
  - Infection [Unknown]
  - Skin haemorrhage [Unknown]
